FAERS Safety Report 19905042 (Version 1)
Quarter: 2021Q3

REPORT INFORMATION
  Report Type: Report from Study
  Country: AU (occurrence: AU)
  Receive Date: 20210930
  Receipt Date: 20210930
  Transmission Date: 20211014
  Serious: Yes (Other)
  Sender: FDA-Public Use
  Company Number: NVSC2021AU218939

PATIENT
  Sex: Female

DRUGS (3)
  1. COSENTYX [Suspect]
     Active Substance: SECUKINUMAB
     Indication: PSORIASIS
     Dosage: 300 MG, QMO
     Route: 058
     Dates: start: 20180406
  2. COSENTYX [Suspect]
     Active Substance: SECUKINUMAB
     Dosage: UNK (ON 22 SEP)
     Route: 065
  3. COSENTYX [Suspect]
     Active Substance: SECUKINUMAB
     Dosage: UNK (ON 08 AUG)
     Route: 065

REACTIONS (5)
  - Neuropathy peripheral [Unknown]
  - Hypersensitivity [Unknown]
  - Paraesthesia [Not Recovered/Not Resolved]
  - Rash [Unknown]
  - Dyspnoea [Unknown]
